FAERS Safety Report 4914010-9 (Version None)
Quarter: 2006Q1

REPORT INFORMATION
  Report Type: 
  Country: None (occurrence: None)
  Receive Date: 20060216
  Receipt Date: 20060208
  Transmission Date: 20060701
  Serious: Yes (Life-Threatening)
  Sender: FDA-Public Use
  Company Number: JP-ROCHE-435209

PATIENT
  Age: 81 Year
  Sex: Male

DRUGS (1)
  1. ANEXATE [Suspect]
     Indication: DRUG USE FOR UNKNOWN INDICATION
     Route: 065
     Dates: start: 20020115, end: 20020115

REACTIONS (1)
  - ANAPHYLACTOID SHOCK [None]
